FAERS Safety Report 15528638 (Version 1)
Quarter: 2018Q4

REPORT INFORMATION
  Report Type: Report from Study
  Country: US (occurrence: US)
  Receive Date: 20181018
  Receipt Date: 20181018
  Transmission Date: 20190205
  Serious: No
  Sender: FDA-Public Use
  Company Number: US-AMGEN-USASL2018140264

PATIENT
  Age: 68 Year
  Sex: Female

DRUGS (1)
  1. REPATHA [Suspect]
     Active Substance: EVOLOCUMAB
     Indication: HYPERCHOLESTEROLAEMIA
     Dosage: 140 MG, Q2WK
     Route: 065

REACTIONS (7)
  - Abdominal distension [Unknown]
  - Food craving [Unknown]
  - Injection site bruising [Unknown]
  - Blood glucose increased [Unknown]
  - Weight increased [Unknown]
  - Abdominal discomfort [Unknown]
  - Diarrhoea [Unknown]
